FAERS Safety Report 13567550 (Version 2)
Quarter: 2017Q2

REPORT INFORMATION
  Report Type: Spontaneous
  Country: US (occurrence: US)
  Receive Date: 20170522
  Receipt Date: 20170601
  Transmission Date: 20170830
  Serious: No
  Sender: FDA-Public Use
  Company Number: US-PFIZER INC-2017221907

PATIENT
  Age: 71 Year
  Sex: Female
  Weight: 44 kg

DRUGS (4)
  1. VITAMIN D3 [Concomitant]
     Active Substance: CHOLECALCIFEROL
     Dosage: UNK
  2. LETROZOLE. [Concomitant]
     Active Substance: LETROZOLE
     Indication: BREAST CANCER METASTATIC
     Dosage: UNK
     Dates: start: 20170216
  3. IBRANCE [Suspect]
     Active Substance: PALBOCICLIB
     Indication: BREAST CANCER METASTATIC
     Dosage: 100 MG, UNK
     Route: 048
     Dates: start: 201704, end: 20170423
  4. VITAMIN B12 [Concomitant]
     Active Substance: CYANOCOBALAMIN
     Dosage: UNK

REACTIONS (6)
  - Gastrointestinal disorder [Recovering/Resolving]
  - Asthenia [Unknown]
  - Skin exfoliation [Recovered/Resolved]
  - Blood count abnormal [Unknown]
  - Erythema [Recovering/Resolving]
  - Skin fissures [Recovered/Resolved]

NARRATIVE: CASE EVENT DATE: 201705
